FAERS Safety Report 8093770-5 (Version None)
Quarter: 2012Q1

REPORT INFORMATION
  Report Type: 
  Country: None (occurrence: None)
  Receive Date: 20120129
  Receipt Date: 20111017
  Transmission Date: 20120608
  Serious: No
  Sender: FDA-Public Use
  Company Number: US-ABBOTT-11P-163-0866166-00

PATIENT
  Sex: Female
  Weight: 50.848 kg

DRUGS (7)
  1. SONATA [Concomitant]
     Indication: INSOMNIA
  2. THYROID TAB [Concomitant]
     Indication: HYPOTHYROIDISM
  3. METHOTREXATE [Concomitant]
     Indication: RHEUMATOID ARTHRITIS
  4. LITHIUM CARBONATE [Concomitant]
     Indication: HYPOMANIA
  5. HYDROCORTISONE [Concomitant]
     Indication: PRODUCT USED FOR UNKNOWN INDICATION
     Dosage: PILLS
  6. EFFEXOR [Concomitant]
     Indication: HYPOMANIA
  7. HUMIRA [Suspect]
     Indication: RHEUMATOID ARTHRITIS
     Route: 058

REACTIONS (1)
  - CONTUSION [None]
